FAERS Safety Report 4810012-1 (Version None)
Quarter: 2005Q4

REPORT INFORMATION
  Report Type: 
  Country: None (occurrence: None)
  Receive Date: 20051024
  Receipt Date: 20051024
  Transmission Date: 20060501
  Serious: Yes (Hospitalization)
  Sender: FDA-Public Use
  Company Number: None

PATIENT
  Age: 67 Year
  Sex: Male
  Weight: 76 kg

DRUGS (14)
  1. OPTIMARK [Suspect]
     Indication: CORONARY ARTERY DISEASE
     Dosage: 31 CC ONCE IV BOLUS
     Route: 040
     Dates: start: 20030825, end: 20030825
  2. OPTIMARK [Suspect]
     Indication: VENTRICULAR DYSFUNCTION
     Dosage: 31 CC ONCE IV BOLUS
     Route: 040
     Dates: start: 20030825, end: 20030825
  3. PROTONIX [Concomitant]
  4. LIPITOR [Concomitant]
  5. WELLBUTRIN [Concomitant]
  6. EFFEXOR [Concomitant]
  7. ZESTRIL [Concomitant]
  8. CALAN [Concomitant]
  9. VANCOMYCIN [Concomitant]
  10. CARAFATE [Concomitant]
  11. LASIX [Concomitant]
  12. GENTRAN [Concomitant]
  13. POTASSIUM [Concomitant]
  14. ALBUMIN (HUMAN) [Concomitant]

REACTIONS (7)
  - ACUTE RESPIRATORY FAILURE [None]
  - HAEMODYNAMIC INSTABILITY [None]
  - LARYNGEAL OEDEMA [None]
  - POST PROCEDURAL COMPLICATION [None]
  - PULMONARY OEDEMA [None]
  - ULCER [None]
  - VOCAL CORD DISORDER [None]
